FAERS Safety Report 6465404-4 (Version None)
Quarter: 2009Q4

REPORT INFORMATION
  Report Type: 
  Country: None (occurrence: None)
  Receive Date: 20091201
  Receipt Date: 20090514
  Transmission Date: 20100525
  Serious: No
  Sender: FDA-Public Use
  Company Number: US-AMGEN-KDL300212

PATIENT
  Sex: Female

DRUGS (14)
  1. ENBREL [Suspect]
     Indication: RHEUMATOID ARTHRITIS
     Route: 058
     Dates: start: 20080424
  2. ENBREL [Suspect]
     Indication: ANKYLOSING SPONDYLITIS
  3. ESTROGEN NOS [Concomitant]
  4. METHOTREXATE [Concomitant]
  5. CRESTOR [Concomitant]
  6. ATENOLOL [Concomitant]
  7. MOBIC [Concomitant]
  8. AMBIEN [Concomitant]
  9. KLONOPIN [Concomitant]
  10. PROGESTERONE [Concomitant]
  11. ALLEGRA [Concomitant]
  12. MYLANTA [Concomitant]
  13. LORTAB [Concomitant]
  14. UNSPECIFIED MEDICATION [Concomitant]
     Route: 045

REACTIONS (12)
  - ABDOMINAL DISCOMFORT [None]
  - ARTHRALGIA [None]
  - BACK PAIN [None]
  - CHEST PAIN [None]
  - DRUG INEFFECTIVE [None]
  - GAIT DISTURBANCE [None]
  - INTERVERTEBRAL DISC PROTRUSION [None]
  - JOINT EFFUSION [None]
  - NIGHT SWEATS [None]
  - SINUSITIS [None]
  - SYNOVITIS [None]
  - THORACIC OUTLET SYNDROME [None]
